FAERS Safety Report 5182652-4 (Version None)
Quarter: 2006Q4

REPORT INFORMATION
  Report Type: 
  Country: None (occurrence: None)
  Receive Date: 20061220
  Receipt Date: 20061212
  Transmission Date: 20070319
  Serious: Yes (Disabling)
  Sender: FDA-Public Use
  Company Number: PHFR2006GB03646

PATIENT
  Age: 60 Year
  Sex: Male
  Weight: 73 kg

DRUGS (1)
  1. LAMISIL [Suspect]
     Indication: ONYCHOMYCOSIS
     Dosage: 250MG DAILY
     Route: 048
     Dates: start: 20060912, end: 20061020

REACTIONS (3)
  - ARTHRITIS [None]
  - SERUM SICKNESS [None]
  - URTICARIA [None]
